FAERS Safety Report 7472854-6 (Version None)
Quarter: 2011Q2

REPORT INFORMATION
  Report Type: 
  Country: None (occurrence: None)
  Receive Date: 20110511
  Receipt Date: 20110104
  Transmission Date: 20111010
  Serious: No
  Sender: FDA-Public Use
  Company Number: A0904833A

PATIENT
  Sex: Female

DRUGS (2)
  1. INNOPRAN XL [Suspect]
     Indication: HYPERTHYROIDISM
     Dosage: 80MG UNKNOWN
     Route: 065
  2. TAPAZOLE [Concomitant]

REACTIONS (5)
  - DRUG INTERACTION [None]
  - HYPERTENSION [None]
  - DRUG INEFFECTIVE [None]
  - DRUG ADMINISTRATION ERROR [None]
  - HEART RATE INCREASED [None]
